FAERS Safety Report 16054025 (Version 2)
Quarter: 2019Q1

REPORT INFORMATION
  Report Type: Spontaneous
  Country: GB (occurrence: GB)
  Receive Date: 20190308
  Receipt Date: 20190318
  Transmission Date: 20190418
  Serious: Yes (Other)
  Sender: FDA-Public Use
  Company Number: GB-009507513-1903GBR003244

PATIENT
  Age: 66 Year
  Sex: Female
  Weight: 65.31 kg

DRUGS (9)
  1. ZAPAIN [Concomitant]
     Active Substance: ACETAMINOPHEN\CODEINE PHOSPHATE
     Dosage: 30/500
  2. CYANOCOBALAMIN. [Concomitant]
     Active Substance: CYANOCOBALAMIN
     Dosage: 1 DOSAGE FORM, QW
  3. DIAZEPAM. [Concomitant]
     Active Substance: DIAZEPAM
     Indication: MUSCLE SPASMS
     Dosage: AT NIGHT
  4. ALENDRONATE SODIUM. [Suspect]
     Active Substance: ALENDRONATE SODIUM
     Indication: OSTEOPOROSIS
     Dosage: 70 MILLIGRAM, QW
     Route: 048
     Dates: start: 20190216, end: 20190217
  5. TEVA LANSOPRAZOLE [Concomitant]
  6. ORAMORPH [Concomitant]
     Active Substance: MORPHINE SULFATE
     Dosage: TAKEN AT 1PM AND 7PM
  7. ZOMORPH [Concomitant]
     Active Substance: MORPHINE SULFATE
  8. CARBIMAZOLE [Concomitant]
     Active Substance: CARBIMAZOLE
  9. GALFER [Concomitant]
     Active Substance: IRON

REACTIONS (6)
  - Headache [Not Recovered/Not Resolved]
  - Toothache [Not Recovered/Not Resolved]
  - Joint swelling [Not Recovered/Not Resolved]
  - Pain in jaw [Not Recovered/Not Resolved]
  - Peripheral swelling [Not Recovered/Not Resolved]
  - Vision blurred [Unknown]

NARRATIVE: CASE EVENT DATE: 20190217
